FAERS Safety Report 5092552-6 (Version None)
Quarter: 2006Q3

REPORT INFORMATION
  Report Type: 
  Country: None (occurrence: None)
  Receive Date: 20060828
  Receipt Date: 20060815
  Transmission Date: 20061208
  Serious: Yes (Other)
  Sender: FDA-Public Use
  Company Number: 2006099685

PATIENT
  Sex: Female

DRUGS (7)
  1. XANAX [Suspect]
     Indication: DRUG USE FOR UNKNOWN INDICATION
  2. WELLBUTRIN [Suspect]
     Indication: DEPRESSION
     Dosage: 300 MG (1 D), ORAL
     Route: 048
  3. WELLBUTRIN XL [Suspect]
     Indication: DEPRESSION
     Dosage: 300 MG (1 D), ORAL
     Route: 048
  4. EFFEXOR [Concomitant]
  5. ATIVAN [Concomitant]
  6. NABUMETONE [Concomitant]
  7. ALL OTHER THERAPEUTIC PRODUCTS [Concomitant]

REACTIONS (7)
  - CRYING [None]
  - DELUSION [None]
  - DRUG INEFFECTIVE [None]
  - ENERGY INCREASED [None]
  - HALLUCINATION [None]
  - HOSTILITY [None]
  - SUBDURAL HAEMATOMA [None]
